FAERS Safety Report 4393404-7 (Version None)
Quarter: 2004Q3

REPORT INFORMATION
  Report Type: 
  Country: None (occurrence: None)
  Receive Date: 20040707
  Receipt Date: 20040707
  Transmission Date: 20050211
  Serious: Yes (Hospitalization)
  Sender: FDA-Public Use
  Company Number: None

PATIENT
  Age: 69 Year
  Sex: Female
  Weight: 60.3 kg

DRUGS (2)
  1. NAPROXEN [Suspect]
     Dosage: ORAL
     Route: 048
     Dates: start: 20030507, end: 20040507
  2. BENICAR SANKYO PHARMA [Suspect]
     Indication: HYPERTENSION
     Dosage: ORAL
     Route: 048
     Dates: start: 20030507, end: 20040507

REACTIONS (4)
  - CONDITION AGGRAVATED [None]
  - MULTIPLE MYELOMA [None]
  - RENAL FAILURE ACUTE [None]
  - SEPSIS [None]
